FAERS Safety Report 7050997-9 (Version None)
Quarter: 2010Q4

REPORT INFORMATION
  Report Type: 
  Country: None (occurrence: None)
  Receive Date: 20101019
  Receipt Date: 20101012
  Transmission Date: 20110411
  Serious: Yes (Hospitalization, Other)
  Sender: FDA-Public Use
  Company Number: FR-JNJFOC-20101003952

PATIENT
  Age: 32 Year
  Sex: Female

DRUGS (2)
  1. DURAGESIC-100 [Suspect]
     Indication: PAIN
     Route: 062
  2. ACTIQ [Suspect]
     Indication: PAIN
     Dosage: 3 TO 8 TIMES PER DAY
     Route: 048

REACTIONS (3)
  - ANXIETY [None]
  - SOMNOLENCE [None]
  - STRESS [None]
